FAERS Safety Report 4365509-8 (Version None)
Quarter: 2004Q2

REPORT INFORMATION
  Report Type: 
  Country: None (occurrence: None)
  Receive Date: 20040526
  Receipt Date: 20001129
  Transmission Date: 20050107
  Serious: Yes (Hospitalization)
  Sender: FDA-Public Use
  Company Number: 20000830001

PATIENT
  Age: 34 Year
  Sex: Male

DRUGS (3)
  1. SUSTIVA [Suspect]
     Indication: HIV INFECTION
     Route: 048
     Dates: start: 20001121, end: 20001127
  2. COMBIVIR [Suspect]
     Indication: HIV INFECTION
     Dosage: 300 MG/150 MG BID
     Route: 048
     Dates: start: 20001121, end: 20001127
  3. LOPERAMIDE HCL [Concomitant]
     Dates: start: 20000713

REACTIONS (8)
  - ARTHRALGIA [None]
  - DRUG HYPERSENSITIVITY [None]
  - ERYTHEMA [None]
  - HAEMATOCHEZIA [None]
  - PRURITUS [None]
  - RASH MACULO-PAPULAR [None]
  - SOMNOLENCE [None]
  - URTICARIA GENERALISED [None]
